FAERS Safety Report 4709882-7 (Version None)
Quarter: 2005Q3

REPORT INFORMATION
  Report Type: 
  Country: None (occurrence: None)
  Receive Date: 20050708
  Receipt Date: 20031216
  Transmission Date: 20060218
  Serious: Yes (Hospitalization)
  Sender: FDA-Public Use
  Company Number: JP-ABBOTT-03P-087-0245182-00

PATIENT
  Sex: Male

DRUGS (6)
  1. KALETRA [Suspect]
     Indication: HIV INFECTION
     Route: 048
     Dates: start: 20020704, end: 20050111
  2. LAMIVUDINE [Suspect]
     Indication: HIV INFECTION
     Route: 048
     Dates: start: 20020704, end: 20050111
  3. STAVUDINE [Suspect]
     Indication: HIV INFECTION
     Route: 048
     Dates: start: 20020704, end: 20050111
  4. BACTRIM [Concomitant]
     Indication: INFECTION PROPHYLAXIS
     Route: 048
     Dates: start: 20020606
  5. SCOPOLAMINE BUTYLBROMIDE [Concomitant]
     Indication: CHOLELITHIASIS
     Route: 048
     Dates: start: 20020620
  6. SCOPOLAMINE BUTYLBROMIDE [Concomitant]
     Indication: CONVULSION

REACTIONS (6)
  - BLOOD BILIRUBIN INCREASED [None]
  - CHOLECYSTITIS [None]
  - CHOLELITHIASIS [None]
  - NAUSEA [None]
  - TINEA PEDIS [None]
  - VOMITING [None]
